FAERS Safety Report 10184549 (Version 1)
Quarter: 2014Q2

REPORT INFORMATION
  Report Type: Spontaneous
  Country: US (occurrence: US)
  Receive Date: 20140521
  Receipt Date: 20140521
  Transmission Date: 20141212
  Serious: Yes (Other)
  Sender: FDA-Public Use
  Company Number: US-DRREDDYS-USA/USA/14/0040395

PATIENT
  Age: 29 Year
  Sex: Female

DRUGS (2)
  1. LEVETIRACETAM [Suspect]
     Indication: IDIOPATHIC GENERALISED EPILEPSY
     Route: 065
  2. LEVETIRACETAM [Suspect]
     Route: 065

REACTIONS (2)
  - Epilepsy [Recovered/Resolved]
  - Exposure during pregnancy [Unknown]
